FAERS Safety Report 14950318 (Version 1)
Quarter: 2018Q2

REPORT INFORMATION
  Report Type: Spontaneous
  Country: TW (occurrence: US)
  Receive Date: 20180530
  Receipt Date: 20180530
  Transmission Date: 20180711
  Serious: No
  Sender: FDA-Public Use
  Company Number: TW-009507513-1805USA004034

PATIENT
  Sex: Male

DRUGS (1)
  1. KEYTRUDA [Suspect]
     Active Substance: PEMBROLIZUMAB
     Indication: GINGIVAL CANCER
     Dosage: UNK, QW

REACTIONS (3)
  - Inappropriate schedule of drug administration [Unknown]
  - Adverse event [Unknown]
  - Product use in unapproved indication [Unknown]
